FAERS Safety Report 4496439-9 (Version None)
Quarter: 2004Q4

REPORT INFORMATION
  Report Type: 
  Country: None (occurrence: None)
  Receive Date: 20041109
  Receipt Date: 20041029
  Transmission Date: 20050328
  Serious: Yes (Hospitalization, Other)
  Sender: FDA-Public Use
  Company Number: US-JNJFOC-20040905719

PATIENT
  Age: 79 Year
  Sex: Female

DRUGS (3)
  1. NATRECOR [Suspect]
     Indication: DRUG USE FOR UNKNOWN INDICATION
     Dosage: 100 MCG BOLUS FOLLOWED BY 0.01 MCG/KG/MINUTE
     Route: 042
  2. FUROSEMIDE [Concomitant]
  3. NITROGLYCERIN [Concomitant]

REACTIONS (3)
  - HYPOTENSION [None]
  - INFUSION RELATED REACTION [None]
  - MYOCARDIAL INFARCTION [None]
